FAERS Safety Report 7200278-5 (Version None)
Quarter: 2010Q4

REPORT INFORMATION
  Report Type: 
  Country: None (occurrence: None)
  Receive Date: 20101228
  Receipt Date: 20101217
  Transmission Date: 20110411
  Serious: Yes (Life-Threatening, Hospitalization, Disabling)
  Sender: FDA-Public Use
  Company Number: B0684743A

PATIENT
  Sex: Male
  Weight: 62 kg

DRUGS (10)
  1. ALKERAN [Suspect]
     Indication: STEM CELL TRANSPLANT
     Dosage: 170MG PER DAY
     Route: 042
     Dates: start: 20100126, end: 20100127
  2. NEUTROGIN [Concomitant]
     Route: 042
     Dates: start: 20100130
  3. FUROSEMIDE [Concomitant]
     Dosage: 20MG PER DAY
     Route: 042
     Dates: start: 20100126, end: 20100127
  4. SAXIZON [Concomitant]
     Dosage: 200MG PER DAY
     Route: 042
     Dates: start: 20100129, end: 20100129
  5. SAXIZON [Concomitant]
     Route: 042
     Dates: start: 20100131, end: 20100208
  6. ALLOZYM [Concomitant]
     Dosage: 200MG PER DAY
     Route: 048
     Dates: start: 20100119, end: 20100129
  7. ITRIZOLE [Concomitant]
     Dosage: 20ML PER DAY
     Route: 048
     Dates: start: 20100119, end: 20100131
  8. ISODINE GARGLE [Concomitant]
     Route: 002
     Dates: start: 20100126, end: 20100228
  9. PROTECADIN [Concomitant]
     Dosage: 10MG PER DAY
     Route: 048
     Dates: start: 20100119, end: 20100215
  10. ITRIZOLE [Concomitant]
     Dosage: 100MG PER DAY
     Route: 048
     Dates: start: 20100201, end: 20100228

REACTIONS (6)
  - CARDIAC FAILURE [None]
  - DECREASED APPETITE [None]
  - DIARRHOEA [None]
  - NAUSEA [None]
  - SEPSIS [None]
  - VENTRICULAR TACHYCARDIA [None]
